FAERS Safety Report 24133895 (Version 1)
Quarter: 2024Q3

REPORT INFORMATION
  Report Type: Spontaneous
  Country: FR (occurrence: FR)
  Receive Date: 20240724
  Receipt Date: 20240724
  Transmission Date: 20241017
  Serious: Yes (Other)
  Sender: FRESENIUS KABI
  Company Number: None

PATIENT
  Age: 72 Year
  Sex: Female

DRUGS (3)
  1. TYENNE [Suspect]
     Active Substance: TOCILIZUMAB-AAZG
     Indication: Product used for unknown indication
     Dosage: INFUSION STARTED AT 10:48 AM TO 11:48 A.M,10 ML/HR FOR 15 MIN, THEN 130 ML/HR FOR 45 MIN, THEN 130 M
     Route: 042
  2. TYENNE [Suspect]
     Active Substance: TOCILIZUMAB-AAZG
     Dosage: C36 J1
     Route: 042
     Dates: start: 20240617
  3. SODIUM CHLORIDE [Suspect]
     Active Substance: SODIUM CHLORIDE
     Indication: Product used for unknown indication
     Dosage: NACL 0.9% 100 ML FREEFLEX
     Route: 042

REACTIONS (3)
  - Urticaria [Recovered/Resolved]
  - Erythema [Unknown]
  - Skin discolouration [Unknown]

NARRATIVE: CASE EVENT DATE: 20240617
